FAERS Safety Report 5409277-7 (Version None)
Quarter: 2007Q3

REPORT INFORMATION
  Report Type: 
  Country: None (occurrence: None)
  Receive Date: 20070809
  Receipt Date: 20070731
  Transmission Date: 20080115
  Serious: Yes (Hospitalization)
  Sender: FDA-Public Use
  Company Number: PHBS2007GT12752

PATIENT
  Age: 85 Year
  Sex: Male

DRUGS (8)
  1. EXELON [Suspect]
     Indication: SENILE DEMENTIA
     Dosage: 1.5 MG/D
     Route: 048
     Dates: start: 20070601
  2. INSULIN HUMAN [Concomitant]
     Route: 058
  3. OMEPRAZOLE [Concomitant]
     Dosage: 20 MG/D
     Route: 048
  4. PK-MERZ [Concomitant]
     Dosage: 100 MG/D
     Route: 048
  5. DIGOXIN [Concomitant]
     Dosage: 0.25 MG/D
     Route: 048
  6. FUROSEMIDE [Concomitant]
     Dosage: 40 MG/D
     Route: 048
  7. PROPRANOLOL [Concomitant]
     Dosage: 40 MG/D
     Route: 048
  8. LACTULOSE [Concomitant]
     Dosage: 15 ML/D
     Route: 048

REACTIONS (2)
  - HAEMATEMESIS [None]
  - OESOPHAGEAL VARICES HAEMORRHAGE [None]
